FAERS Safety Report 6902455-7 (Version None)
Quarter: 2010Q3

REPORT INFORMATION
  Report Type: 
  Country: None (occurrence: None)
  Receive Date: 20100803
  Receipt Date: 20100726
  Transmission Date: 20110219
  Serious: Yes (Death)
  Sender: FDA-Public Use
  Company Number: US-AMGEN-QUU427070

PATIENT
  Sex: Male

DRUGS (3)
  1. NPLATE [Suspect]
     Indication: MYELODYSPLASTIC SYNDROME
     Route: 058
     Dates: start: 20100626, end: 20100722
  2. CORTICOSTEROIDS [Concomitant]
     Dates: start: 20100616, end: 20100630
  3. VIDAZA [Concomitant]

REACTIONS (1)
  - CARDIAC DEATH [None]
